FAERS Safety Report 10048677 (Version 2)
Quarter: 2014Q2

REPORT INFORMATION
  Report Type: Spontaneous
  Country: US (occurrence: US)
  Receive Date: 20140331
  Receipt Date: 20140410
  Transmission Date: 20141212
  Serious: Yes (Hospitalization, Other)
  Sender: FDA-Public Use
  Company Number: US-BRISTOL-MYERS SQUIBB COMPANY-20551941

PATIENT
  Age: 74 Year
  Sex: Female

DRUGS (3)
  1. NULOJIX [Suspect]
     Indication: RENAL TRANSPLANT
     Dates: start: 20120319
  2. MYFORTIC [Suspect]
     Dosage: REDUCED TO 360 MG BID
  3. PREDNISONE [Suspect]
     Dates: start: 20120315

REACTIONS (3)
  - Deafness [Unknown]
  - Urinary tract infection [Recovering/Resolving]
  - Anaemia [Unknown]
